FAERS Safety Report 4898027-9 (Version None)
Quarter: 2006Q1

REPORT INFORMATION
  Report Type: 
  Country: None (occurrence: None)
  Receive Date: 20060201
  Receipt Date: 20051230
  Transmission Date: 20060701
  Serious: Yes (Death, Hospitalization)
  Sender: FDA-Public Use
  Company Number: TH-ROCHE-430169

PATIENT
  Age: 64 Year
  Sex: Female
  Weight: 55 kg

DRUGS (4)
  1. CAPECITABINE [Suspect]
     Dosage: 3-WEEK CYCLES CONSISTING 2 WEEKS TREATMENT FOLLOWED BY 1 WEEK WITHOUT TREATMENT
     Route: 048
     Dates: start: 20050928
  2. BEVACIZUMAB [Suspect]
     Route: 042
     Dates: start: 20050928
  3. OXALIPLATIN [Suspect]
     Route: 042
     Dates: start: 20050928
  4. ENALAPRIL [Concomitant]
     Dates: start: 20030101

REACTIONS (7)
  - AMOEBIASIS [None]
  - BRONCHOSPASM [None]
  - DIARRHOEA [None]
  - DYSPNOEA [None]
  - RENAL FAILURE [None]
  - STREPTOCOCCAL INFECTION [None]
  - WHEEZING [None]
